FAERS Safety Report 6057243-3 (Version None)
Quarter: 2009Q1

REPORT INFORMATION
  Report Type: 
  Country: None (occurrence: None)
  Receive Date: 20090129
  Receipt Date: 20080528
  Transmission Date: 20090719
  Serious: No
  Sender: FDA-Public Use
  Company Number: A0729964A

PATIENT
  Age: 38 Year
  Sex: Male

DRUGS (2)
  1. WELLBUTRIN [Suspect]
     Indication: DEPRESSION
     Dosage: 75MG THREE TIMES PER DAY
     Route: 048
     Dates: start: 20080220
  2. LEXAPRO [Suspect]
     Dosage: 10MG PER DAY
     Dates: start: 20071201

REACTIONS (3)
  - APHTHOUS STOMATITIS [None]
  - GLOSSITIS [None]
  - HEADACHE [None]
